FAERS Safety Report 14985215 (Version 1)
Quarter: 2018Q2

REPORT INFORMATION
  Report Type: Spontaneous
  Country: US (occurrence: US)
  Receive Date: 20180518
  Receipt Date: 20180518
  Transmission Date: 20180711
  Serious: Yes (Death)
  Sender: FDA-Public Use
  Company Number: None

PATIENT
  Sex: Male

DRUGS (14)
  1. PROCRIT [Suspect]
     Active Substance: ERYTHROPOIETIN
     Indication: PRODUCT USED FOR UNKNOWN INDICATION
     Route: 058
     Dates: start: 20180427
  2. BORVANA 15MCG [Concomitant]
  3. ASPIRIN 81MG [Concomitant]
     Active Substance: ASPIRIN
  4. OMEPRAZOLE 40MG [Concomitant]
     Active Substance: OMEPRAZOLE
  5. PANTOPRAZOLE 40MG [Concomitant]
     Active Substance: PANTOPRAZOLE SODIUM
  6. TAMSULOSIN 0.4MG [Concomitant]
     Active Substance: TAMSULOSIN
  7. BENZONATATE 200MG [Concomitant]
     Active Substance: BENZONATATE
  8. BRILINTA [Concomitant]
     Active Substance: TICAGRELOR
  9. FOLIC ACID 1MG [Concomitant]
  10. NITROGLYCERIN 0.4MG SL [Concomitant]
  11. CITALOPRAM [Concomitant]
     Active Substance: CITALOPRAM HYDROBROMIDE
  12. LOSARTAN 100MG [Concomitant]
     Active Substance: LOSARTAN
  13. FUROSEMIDE 40MG [Concomitant]
     Active Substance: FUROSEMIDE
  14. METOPROLOL SUCCINATE 50MG ER [Concomitant]

REACTIONS (1)
  - Death [None]
